FAERS Safety Report 25020536 (Version 1)
Quarter: 2025Q1

REPORT INFORMATION
  Report Type: Spontaneous
  Country: US (occurrence: US)
  Receive Date: 20250227
  Receipt Date: 20250227
  Transmission Date: 20250409
  Serious: No
  Sender: GALDERMA
  Company Number: US-GALDERMA-US2025000151

PATIENT
  Sex: Female

DRUGS (4)
  1. NEMLUVIO [Suspect]
     Active Substance: NEMOLIZUMAB-ILTO
     Indication: Neurodermatitis
     Route: 058
     Dates: start: 20241015, end: 20241015
  2. NEMLUVIO [Suspect]
     Active Substance: NEMOLIZUMAB-ILTO
     Indication: Eczema
     Route: 058
     Dates: start: 2024, end: 2024
  3. NEMLUVIO [Suspect]
     Active Substance: NEMOLIZUMAB-ILTO
     Route: 058
     Dates: start: 20241219, end: 20241219
  4. CORTISONE [Concomitant]
     Active Substance: CORTISONE
     Indication: Nodule

REACTIONS (10)
  - Dry skin [Unknown]
  - Inflammation [Unknown]
  - Facial pain [Unknown]
  - Erythema [Unknown]
  - Skin exfoliation [Unknown]
  - Eyelid exfoliation [Unknown]
  - Erythema of eyelid [Unknown]
  - Eyelid skin dryness [Unknown]
  - Skin wrinkling [Unknown]
  - Intentional product use issue [Recovered/Resolved]

NARRATIVE: CASE EVENT DATE: 20240101
